FAERS Safety Report 25154836 (Version 1)
Quarter: 2025Q2

REPORT INFORMATION
  Report Type: Spontaneous
  Country: US (occurrence: US)
  Receive Date: 20250403
  Receipt Date: 20250403
  Transmission Date: 20250716
  Serious: No
  Sender: PFIZER
  Company Number: US-PFIZER INC-202500069393

PATIENT
  Age: 54 Year
  Sex: Female

DRUGS (1)
  1. XELJANZ XR [Suspect]
     Active Substance: TOFACITINIB CITRATE
     Dosage: 1 TABLET ORALLY ONCE A DAY
     Route: 048

REACTIONS (6)
  - Arthralgia [Unknown]
  - Joint stiffness [Unknown]
  - Fatigue [Recovering/Resolving]
  - Dry mouth [Unknown]
  - Dry eye [Unknown]
  - Alopecia [Unknown]
